FAERS Safety Report 9476452 (Version 1)
Quarter: 2013Q3

REPORT INFORMATION
  Report Type: Spontaneous
  Country: US (occurrence: None)
  Receive Date: 20130823
  Receipt Date: 20130823
  Transmission Date: 20140515
  Serious: Yes (Life-Threatening, Hospitalization, Disabling)
  Sender: FDA-Public Use
  Company Number: None

PATIENT
  Age: 36 Year
  Sex: Female
  Weight: 98 kg

DRUGS (1)
  1. TRAMADOL [Suspect]
     Indication: HEADACHE
     Dosage: 1 PILL, PRN/AS NEEDED, ORAL
     Route: 048

REACTIONS (5)
  - Fall [None]
  - Cerebral haemorrhage [None]
  - Convulsion [None]
  - Loss of consciousness [None]
  - Amnesia [None]
